FAERS Safety Report 7333137-8 (Version None)
Quarter: 2011Q1

REPORT INFORMATION
  Report Type: 
  Country: None (occurrence: None)
  Receive Date: 20110222
  Receipt Date: 20110209
  Transmission Date: 20110831
  Serious: Yes (Other)
  Sender: FDA-Public Use
  Company Number: JP-2011-10195

PATIENT
  Age: 42 Year
  Sex: Male

DRUGS (6)
  1. SAMSCA [Suspect]
     Indication: CONGESTIVE CARDIOMYOPATHY
     Dosage: 7.5 MG MILLIGRAM(S), QD, ORAL
     Route: 048
     Dates: start: 20110125, end: 20110131
  2. WARFARIN (WARFARIN) [Concomitant]
  3. ARTIST (CARVEDILOL) [Concomitant]
  4. LASIX [Suspect]
     Dosage: 120 MG MILLIGRAM(S),DAILY DOSE
  5. DIOVAN [Concomitant]
  6. MEXITIL [Concomitant]

REACTIONS (3)
  - DEHYDRATION [None]
  - RENAL IMPAIRMENT [None]
  - DIARRHOEA [None]
